FAERS Safety Report 7249658-2 (Version None)
Quarter: 2011Q1

REPORT INFORMATION
  Report Type: 
  Country: None (occurrence: None)
  Receive Date: 20110128
  Receipt Date: 20110121
  Transmission Date: 20110831
  Serious: Yes (Other)
  Sender: FDA-Public Use
  Company Number: US-JNJFOC-20101106070

PATIENT
  Age: 48 Year
  Sex: Female

DRUGS (1)
  1. DURAGESIC-50 [Suspect]
     Indication: ARTHRALGIA
     Route: 062

REACTIONS (4)
  - HEAD DISCOMFORT [None]
  - COGNITIVE DISORDER [None]
  - WITHDRAWAL SYNDROME [None]
  - HOT FLUSH [None]
